FAERS Safety Report 5445104-X (Version None)
Quarter: 2007Q3

REPORT INFORMATION
  Report Type: 
  Country: None (occurrence: None)
  Receive Date: 20070906
  Receipt Date: 20070827
  Transmission Date: 20080115
  Serious: Yes (Hospitalization, Other)
  Sender: FDA-Public Use
  Company Number: US-PFIZER INC-2007071601

PATIENT
  Sex: Male
  Weight: 79.4 kg

DRUGS (3)
  1. GLUCOTROL [Suspect]
     Indication: DIABETES MELLITUS
  2. LISINOPRIL [Concomitant]
  3. SIMVASTATIN [Concomitant]

REACTIONS (5)
  - BLOOD GLUCOSE ABNORMAL [None]
  - BLOOD GLUCOSE DECREASED [None]
  - DIZZINESS [None]
  - GLYCOSYLATED HAEMOGLOBIN INCREASED [None]
  - VASCULAR GRAFT [None]
